FAERS Safety Report 14966392 (Version 1)
Quarter: 2018Q2

REPORT INFORMATION
  Report Type: Spontaneous
  Country: FR (occurrence: FR)
  Receive Date: 20180604
  Receipt Date: 20180604
  Transmission Date: 20180711
  Serious: Yes (Hospitalization)
  Sender: FDA-Public Use
  Company Number: FR-TEVA-2018-FR-899857

PATIENT
  Age: 70 Year
  Sex: Male
  Weight: 50 kg

DRUGS (6)
  1. ENDOXAN [Suspect]
     Active Substance: CYCLOPHOSPHAMIDE
     Indication: NON-HODGKIN^S LYMPHOMA
     Dosage: NON RENSEIGNEE
     Route: 042
     Dates: start: 20180222
  2. METHYLPREDNISOLONE. [Suspect]
     Active Substance: METHYLPREDNISOLONE
     Indication: NON-HODGKIN^S LYMPHOMA
     Dosage: NON RENSEIGNEE
     Route: 042
     Dates: start: 20180222
  3. TRUXIMA [Suspect]
     Active Substance: RITUXIMAB
     Indication: NON-HODGKIN^S LYMPHOMA
     Route: 042
     Dates: start: 20180222, end: 20180222
  4. DOXORUBICINE (CHLORHYDRATE DE) [Suspect]
     Active Substance: DOXORUBICIN
     Indication: NON-HODGKIN^S LYMPHOMA
     Dosage: NON RENSEIGNEE
     Route: 011
     Dates: start: 20180222
  5. UROMITEXAN [Suspect]
     Active Substance: MESNA
     Indication: NON-HODGKIN^S LYMPHOMA
     Dosage: NON RENSEIGNEE
     Route: 042
     Dates: start: 20180222
  6. VINCRISTINE (SULFATE DE) [Suspect]
     Active Substance: VINCRISTINE SULFATE
     Indication: NON-HODGKIN^S LYMPHOMA
     Dosage: NON RENSEIGNEE
     Route: 042
     Dates: start: 20180222

REACTIONS (1)
  - Pneumocystis jirovecii pneumonia [Recovered/Resolved]

NARRATIVE: CASE EVENT DATE: 20180224
